FAERS Safety Report 7004938-0 (Version None)
Quarter: 2010Q3

REPORT INFORMATION
  Report Type: 
  Country: None (occurrence: None)
  Receive Date: 20100920
  Receipt Date: 20100920
  Transmission Date: 20110219
  Serious: No
  Sender: FDA-Public Use
  Company Number: None

PATIENT
  Age: 29 Year
  Sex: Male
  Weight: 101.8325 kg

DRUGS (1)
  1. DRONABINOL [Suspect]

REACTIONS (6)
  - ABDOMINAL PAIN UPPER [None]
  - MALAISE [None]
  - MYOCLONUS [None]
  - NAUSEA [None]
  - PANIC ATTACK [None]
  - VOMITING [None]
